FAERS Safety Report 19307809 (Version 2)
Quarter: 2021Q2

REPORT INFORMATION
  Report Type: Report from Study
  Country: DE (occurrence: DE)
  Receive Date: 20210526
  Receipt Date: 20210603
  Transmission Date: 20210717
  Serious: Yes (Other)
  Sender: FDA-Public Use
  Company Number: DE-JNJFOC-20210543993

PATIENT

DRUGS (1)
  1. STELARA [Suspect]
     Active Substance: USTEKINUMAB
     Indication: PSORIASIS
     Route: 058

REACTIONS (8)
  - Infection [Unknown]
  - Upper respiratory tract infection [Unknown]
  - Basal cell carcinoma [Unknown]
  - Liver disorder [Recovered/Resolved]
  - Drug ineffective [Unknown]
  - Suicidal ideation [Unknown]
  - Nasopharyngitis [Unknown]
  - Oral candidiasis [Unknown]
